FAERS Safety Report 17911586 (Version 4)
Quarter: 2020Q4

REPORT INFORMATION
  Report Type: Spontaneous
  Country: US (occurrence: US)
  Receive Date: 20200618
  Receipt Date: 20201231
  Transmission Date: 20210113
  Serious: No
  Sender: FDA-Public Use
  Company Number: US-PFIZER INC-2019002403

PATIENT
  Age: 57 Year
  Sex: Female
  Weight: 70.3 kg

DRUGS (6)
  1. EFFEXOR XR [Suspect]
     Active Substance: VENLAFAXINE HYDROCHLORIDE
     Indication: ANXIETY
     Dosage: 37.5 MG, 3X/DAY
     Route: 048
     Dates: start: 20191120
  2. EFFEXOR XR [Suspect]
     Active Substance: VENLAFAXINE HYDROCHLORIDE
     Dosage: 225 MG, DAILY (TAKE 6 CAPSULES OF 37.5MG DAILY)
     Route: 048
  3. EFFEXOR XR [Suspect]
     Active Substance: VENLAFAXINE HYDROCHLORIDE
     Indication: DEPRESSION
     Dosage: 150 MG, DAILY
     Route: 048
  4. EFFEXOR XR [Suspect]
     Active Substance: VENLAFAXINE HYDROCHLORIDE
     Dosage: 2 DF, UNK
     Route: 048
     Dates: start: 20200613, end: 20200614
  5. EFFEXOR XR [Suspect]
     Active Substance: VENLAFAXINE HYDROCHLORIDE
     Indication: MENTAL DISORDER
     Dosage: 6 DF, UNK
     Route: 048
     Dates: start: 202005, end: 20200609
  6. EFFEXOR XR [Suspect]
     Active Substance: VENLAFAXINE HYDROCHLORIDE
     Dosage: UNK DECREASED
     Route: 048
     Dates: start: 20200610, end: 20200612

REACTIONS (3)
  - Malaise [Unknown]
  - Intentional product use issue [Unknown]
  - Tearfulness [Unknown]

NARRATIVE: CASE EVENT DATE: 202006
